FAERS Safety Report 12263431 (Version 2)
Quarter: 2016Q2

REPORT INFORMATION
  Report Type: Spontaneous
  Country: US (occurrence: US)
  Receive Date: 20160413
  Receipt Date: 20160503
  Transmission Date: 20160815
  Serious: Yes (Other)
  Sender: FDA-Public Use
  Company Number: US-BRISTOL-MYERS SQUIBB COMPANY-BMS-2016-025973

PATIENT
  Age: 67 Year
  Sex: Male

DRUGS (3)
  1. YERVOY [Suspect]
     Active Substance: IPILIMUMAB
     Indication: METASTATIC MALIGNANT MELANOMA
     Dosage: 790 MG, Q3WK
     Route: 065
     Dates: start: 20160210
  2. YERVOY [Suspect]
     Active Substance: IPILIMUMAB
     Dosage: 10 MG/KG, UNK
     Route: 065
     Dates: start: 20160205, end: 20160415
  3. YERVOY [Suspect]
     Active Substance: IPILIMUMAB
     Dosage: 3 MG/KG, UNK
     Route: 065
     Dates: end: 20160415

REACTIONS (9)
  - Rash macular [Unknown]
  - Autoimmune colitis [Unknown]
  - Hypotension [Unknown]
  - Decreased appetite [Unknown]
  - Sinusitis [Unknown]
  - Radiation skin injury [Unknown]
  - Fatigue [Unknown]
  - Dysgeusia [Unknown]
  - Weight decreased [Unknown]

NARRATIVE: CASE EVENT DATE: 20160205
